FAERS Safety Report 18326895 (Version 1)
Quarter: 2020Q3

REPORT INFORMATION
  Report Type: Spontaneous
  Country: AR (occurrence: AR)
  Receive Date: 20200930
  Receipt Date: 20200930
  Transmission Date: 20201103
  Serious: Yes (Other)
  Sender: FDA-Public Use
  Company Number: AR-ROCHE-2684861

PATIENT
  Age: 50 Year
  Sex: Female

DRUGS (4)
  1. NAB?PACLITAXEL [Concomitant]
     Active Substance: PACLITAXEL
     Indication: BREAST CANCER METASTATIC
     Dates: start: 201911
  2. ATEZOLIZUMAB. [Suspect]
     Active Substance: ATEZOLIZUMAB
     Indication: BREAST CANCER METASTATIC
     Route: 041
     Dates: start: 201911
  3. PACLITAXEL. [Concomitant]
     Active Substance: PACLITAXEL
     Indication: HER2 NEGATIVE BREAST CANCER
     Dates: start: 2017
  4. CAPECITABINE. [Suspect]
     Active Substance: CAPECITABINE
     Indication: BREAST CANCER
     Route: 048
     Dates: start: 2017, end: 201712

REACTIONS (3)
  - Weight decreased [Unknown]
  - Hypothyroidism [Unknown]
  - Asthenia [Unknown]

NARRATIVE: CASE EVENT DATE: 201910
